FAERS Safety Report 5790101-8 (Version None)
Quarter: 2008Q2

REPORT INFORMATION
  Report Type: 
  Country: None (occurrence: None)
  Receive Date: 20080626
  Receipt Date: 20080505
  Transmission Date: 20081010
  Serious: No
  Sender: FDA-Public Use
  Company Number: A0674525A

PATIENT

DRUGS (1)
  1. ALLI [Suspect]
     Indication: DRUG USE FOR UNKNOWN INDICATION
     Dates: start: 20070619

REACTIONS (7)
  - FATIGUE [None]
  - FLUID RETENTION [None]
  - HUNGER [None]
  - MALAISE [None]
  - MENSTRUATION IRREGULAR [None]
  - NASOPHARYNGITIS [None]
  - WEIGHT FLUCTUATION [None]
